FAERS Safety Report 6817358-6 (Version None)
Quarter: 2010Q2

REPORT INFORMATION
  Report Type: 
  Country: None (occurrence: None)
  Receive Date: 20100630
  Receipt Date: 20100615
  Transmission Date: 20101027
  Serious: Yes (Hospitalization)
  Sender: FDA-Public Use
  Company Number: 2010AL003599

PATIENT
  Age: 28 Year
  Sex: Male

DRUGS (3)
  1. CARBMAZEPINE [Suspect]
  2. PHENOTHIAZINE [Concomitant]
  3. HALOPERIDOL [Concomitant]

REACTIONS (9)
  - COLONIC POLYP [None]
  - DIARRHOEA HAEMORRHAGIC [None]
  - GASTROINTESTINAL MOTILITY DISORDER [None]
  - HAEMORRHAGIC INFARCTION [None]
  - INTESTINAL INFARCTION [None]
  - INTUSSUSCEPTION [None]
  - NEUTROPHIL PERCENTAGE INCREASED [None]
  - POST PROCEDURAL COMPLICATION [None]
  - WHITE BLOOD CELL COUNT INCREASED [None]
